FAERS Safety Report 17036655 (Version 2)
Quarter: 2021Q2

REPORT INFORMATION
  Report Type: Spontaneous
  Country: FR (occurrence: FR)
  Receive Date: 20191115
  Receipt Date: 20210427
  Transmission Date: 20210716
  Serious: Yes (Death)
  Sender: FDA-Public Use
  Company Number: FR-PFIZER INC-2019492904

PATIENT
  Age: 65 Year
  Sex: Female
  Weight: 39 kg

DRUGS (1)
  1. TAFAMIDIS MEGLUMINE [Suspect]
     Active Substance: TAFAMIDIS MEGLUMINE
     Indication: CARDIAC AMYLOIDOSIS
     Dosage: 20 MG, 1X/DAY
     Route: 048
     Dates: start: 20110301, end: 20190206

REACTIONS (3)
  - Hyponatraemia [Fatal]
  - Syncope [Fatal]
  - Hypercreatininaemia [Fatal]

NARRATIVE: CASE EVENT DATE: 20190206
